FAERS Safety Report 4654451-0 (Version None)
Quarter: 2005Q2

REPORT INFORMATION
  Report Type: 
  Country: None (occurrence: None)
  Receive Date: 20050505
  Receipt Date: 20050505
  Transmission Date: 20051028
  Serious: Yes (Death)
  Sender: FDA-Public Use
  Company Number: None

PATIENT
  Age: 57 Year
  Sex: Male
  Weight: 87.5442 kg

DRUGS (9)
  1. PEG INTRON [Suspect]
     Indication: HEPATITIS C
     Dosage: 3.0 MCG/KG SQ/WK   .89MLS
     Route: 058
     Dates: start: 20050331, end: 20050428
  2. RIBAVIRIN [Suspect]
     Indication: HEPATITIS C
     Dosage: 200 MG  1200 MG/DAY
     Dates: start: 20050331, end: 20050430
  3. PHENERGAN [Concomitant]
  4. SYNTHROID [Concomitant]
  5. OXYCONTIN [Concomitant]
  6. DIOVAN [Concomitant]
  7. SOMA [Concomitant]
  8. LORTAB [Concomitant]
  9. TYLENOL (CAPLET) [Concomitant]

REACTIONS (1)
  - DEATH [None]
